FAERS Safety Report 9988164 (Version 1)
Quarter: 2014Q1

REPORT INFORMATION
  Report Type: Spontaneous
  Country: US (occurrence: US)
  Receive Date: 20140309
  Receipt Date: 20140309
  Transmission Date: 20141002
  Serious: No
  Sender: FDA-Public Use
  Company Number: US-TEVA-467048USA

PATIENT
  Sex: 0

DRUGS (1)
  1. NUVIGIL [Suspect]

REACTIONS (1)
  - Rash [Unknown]
